FAERS Safety Report 6282243-8 (Version None)
Quarter: 2009Q3

REPORT INFORMATION
  Report Type: 
  Country: None (occurrence: None)
  Receive Date: 20090722
  Receipt Date: 20090709
  Transmission Date: 20100115
  Serious: Yes (Other)
  Sender: FDA-Public Use
  Company Number: TRP_06209_2009

PATIENT
  Sex: Male

DRUGS (2)
  1. RIBAPAK (NOT SPECIFIED) [Suspect]
     Indication: DRUG USE FOR UNKNOWN INDICATION
     Dosage: (2000 MG, DAILY ORAL)
     Route: 048
     Dates: start: 20090406
  2. PEG-INTRON [Suspect]
     Indication: DRUG USE FOR UNKNOWN INDICATION
     Dosage: (180 UG 1X/WEEK SUBCUTANEOUS)
     Route: 058
     Dates: start: 20090406

REACTIONS (2)
  - HOMICIDE [None]
  - PREGNANCY OF PARTNER [None]
